FAERS Safety Report 4960328-3 (Version None)
Quarter: 2006Q1

REPORT INFORMATION
  Report Type: 
  Country: None (occurrence: None)
  Receive Date: 20060328
  Receipt Date: 20060322
  Transmission Date: 20060701
  Serious: Yes (Death)
  Sender: FDA-Public Use
  Company Number: ITWYE498122MAR06

PATIENT
  Sex: Male

DRUGS (1)
  1. FAXINE (VENLAFAXINE HYDROCHLORIDE, UNSPEC, 0) [Suspect]
     Dosage: ORAL
     Route: 048
     Dates: start: 20060201, end: 20060201

REACTIONS (1)
  - DEATH [None]
